FAERS Safety Report 6368515-7 (Version None)
Quarter: 2009Q3

REPORT INFORMATION
  Report Type: 
  Country: None (occurrence: None)
  Receive Date: 20090922
  Receipt Date: 20090915
  Transmission Date: 20100115
  Serious: Yes (Hospitalization)
  Sender: FDA-Public Use
  Company Number: B0593321A

PATIENT
  Sex: Female

DRUGS (9)
  1. AUGMENTIN [Suspect]
     Indication: DRUG USE FOR UNKNOWN INDICATION
     Route: 065
     Dates: start: 20090807, end: 20090810
  2. TEGRETOL [Suspect]
     Indication: DRUG USE FOR UNKNOWN INDICATION
     Route: 048
     Dates: start: 20090730, end: 20090821
  3. SERESTA [Suspect]
     Indication: DRUG USE FOR UNKNOWN INDICATION
     Route: 048
     Dates: start: 20090730, end: 20090825
  4. XANAX [Suspect]
     Route: 048
     Dates: start: 20080301, end: 20090730
  5. ZYPREXA [Suspect]
     Route: 048
     Dates: start: 20080301, end: 20090730
  6. ADVIL [Suspect]
     Indication: HEADACHE
     Route: 065
     Dates: start: 20090803, end: 20090807
  7. ZINNAT [Suspect]
     Route: 065
     Dates: start: 20090810
  8. DOLIPRANE [Concomitant]
     Route: 065
     Dates: start: 20090807
  9. ACETAMINOPHEN [Concomitant]
     Route: 065

REACTIONS (20)
  - ALANINE AMINOTRANSFERASE INCREASED [None]
  - BLOOD CREATINE PHOSPHOKINASE INCREASED [None]
  - BLOOD LACTATE DEHYDROGENASE INCREASED [None]
  - DRUG RASH WITH EOSINOPHILIA AND SYSTEMIC SYMPTOMS [None]
  - EOSINOPHILIA [None]
  - EYELID OEDEMA [None]
  - FACE OEDEMA [None]
  - GENERALISED ERYTHEMA [None]
  - HYPOTENSION [None]
  - INFECTION [None]
  - LEUKOCYTOSIS [None]
  - LOCALISED OEDEMA [None]
  - LYMPHADENOPATHY [None]
  - MYALGIA [None]
  - PROTHROMBIN TIME RATIO DECREASED [None]
  - PRURITUS [None]
  - PYREXIA [None]
  - RALES [None]
  - SKIN EXFOLIATION [None]
  - SYSTEMIC LUPUS ERYTHEMATOSUS [None]
